FAERS Safety Report 18844025 (Version 1)
Quarter: 2021Q1

REPORT INFORMATION
  Report Type: Spontaneous
  Country: JP (occurrence: JP)
  Receive Date: 20210203
  Receipt Date: 20210203
  Transmission Date: 20210419
  Serious: Yes (Other)
  Sender: FDA-Public Use
  Company Number: JP-EXELIXIS-CABO-20034103

PATIENT
  Age: 54 Year

DRUGS (1)
  1. CABOMETYX [Suspect]
     Active Substance: CABOZANTINIB S-MALATE
     Indication: RENAL CELL CARCINOMA
     Dosage: 60 MILLIGRAM
     Route: 048
     Dates: start: 20200805, end: 20200826

REACTIONS (2)
  - Diarrhoea [Unknown]
  - Pancreatitis [Unknown]
